FAERS Safety Report 10534565 (Version 1)
Quarter: 2014Q4

REPORT INFORMATION
  Report Type: Spontaneous
  Country: GB (occurrence: GB)
  Receive Date: 20141022
  Receipt Date: 20141022
  Transmission Date: 20150529
  Serious: Yes (Other)
  Sender: FDA-Public Use
  Company Number: GB-TEVA-515157ISR

PATIENT
  Sex: Male

DRUGS (5)
  1. CLOZAPINE. [Interacting]
     Active Substance: CLOZAPINE
     Route: 065
  2. LEVOTHYROXINE [Interacting]
     Active Substance: LEVOTHYROXINE
     Dosage: 200 MILLIGRAM DAILY; 25 MICROGRAM,150MCG, RAISED TO 200MG,  8 TIMES DAILY
     Route: 048
  3. METFORMIN [Interacting]
     Active Substance: METFORMIN HYDROCHLORIDE
     Dosage: 2000 MILLIGRAM DAILY;
     Route: 065
  4. GLICLAZIDE [Suspect]
     Active Substance: GLICLAZIDE
     Dosage: 160 MILLIGRAM DAILY;
     Route: 065
  5. LEVOTHYROXINE [Interacting]
     Active Substance: LEVOTHYROXINE
     Dosage: 150 MICROGRAM DAILY; 25 UG, 6 TIMES DAILY (150 MCG DAILY)
     Route: 048

REACTIONS (2)
  - Blood glucose increased [Unknown]
  - Drug interaction [Unknown]
